FAERS Safety Report 4636512-5 (Version None)
Quarter: 2005Q2

REPORT INFORMATION
  Report Type: 
  Country: None (occurrence: None)
  Receive Date: 20050414
  Receipt Date: 20050414
  Transmission Date: 20051028
  Serious: Yes (Other)
  Sender: FDA-Public Use
  Company Number: None

PATIENT
  Sex: Female
  Weight: 63.5036 kg

DRUGS (1)
  1. ADVAIR DISKUS 250/50 [Suspect]
     Indication: ASTHMA
     Dosage: I INHALATION   2 TIMES DAILY    RESPIRATOR
     Route: 055
     Dates: start: 20050331, end: 20050410

REACTIONS (33)
  - ASTHENIA [None]
  - ASTHMA [None]
  - CONDITION AGGRAVATED [None]
  - CONSTIPATION [None]
  - COORDINATION ABNORMAL [None]
  - DIARRHOEA [None]
  - DIZZINESS [None]
  - DRY SKIN [None]
  - DYSGEUSIA [None]
  - EAR DISORDER [None]
  - EAR PAIN [None]
  - EPISTAXIS [None]
  - FATIGUE [None]
  - HEADACHE [None]
  - IRRITABILITY [None]
  - JOINT STIFFNESS [None]
  - LETHARGY [None]
  - MOOD SWINGS [None]
  - MUSCULOSKELETAL STIFFNESS [None]
  - NAUSEA [None]
  - PHOTOPSIA [None]
  - POLLAKIURIA [None]
  - PRURITUS GENERALISED [None]
  - RASH [None]
  - SINUS HEADACHE [None]
  - SKIN DISORDER [None]
  - SLEEP DISORDER [None]
  - TENDERNESS [None]
  - TINNITUS [None]
  - URTICARIA [None]
  - VISION BLURRED [None]
  - VISUAL FIELD DEFECT [None]
  - VITREOUS FLOATERS [None]
